FAERS Safety Report 9007315 (Version 1)
Quarter: 2013Q1

REPORT INFORMATION
  Report Type: Spontaneous
  Country: IT (occurrence: IT)
  Receive Date: 20130110
  Receipt Date: 20130110
  Transmission Date: 20140127
  Serious: Yes (Death, Hospitalization)
  Sender: FDA-Public Use
  Company Number: IT-MYLANLABS-2013S1000082

PATIENT
  Age: 23 Year
  Sex: Male

DRUGS (5)
  1. CLARITHROMYCIN [Suspect]
     Indication: OROPHARYNGEAL PAIN
     Dosage: 4X 500MG TABLETS (2G) ON 1ST DAY OF TREATMENT
     Route: 065
     Dates: start: 201106
  2. AMISULPRIDE [Suspect]
     Indication: SCHIZOAFFECTIVE DISORDER
     Route: 065
  3. FLUPHENAZINE [Suspect]
     Indication: SCHIZOAFFECTIVE DISORDER
     Route: 065
  4. LITHIUM [Suspect]
     Indication: SCHIZOAFFECTIVE DISORDER
     Route: 065
  5. ORPHENADRINE [Suspect]
     Indication: SCHIZOAFFECTIVE DISORDER
     Route: 065

REACTIONS (4)
  - Hepatitis fulminant [Fatal]
  - Hypertransaminasaemia [Not Recovered/Not Resolved]
  - Diarrhoea [Unknown]
  - Vomiting [Unknown]
